FAERS Safety Report 24761486 (Version 1)
Quarter: 2024Q4

REPORT INFORMATION
  Report Type: Spontaneous
  Country: CN (occurrence: CN)
  Receive Date: 20241220
  Receipt Date: 20241220
  Transmission Date: 20250115
  Serious: Yes (Other)
  Sender: GE HEALTHCARE
  Company Number: CN-GE HEALTHCARE-2024CSU014623

PATIENT
  Age: 60 Year
  Sex: Female

DRUGS (1)
  1. OMNIPAQUE [Suspect]
     Active Substance: IOHEXOL
     Indication: Urogram
     Dosage: 35 GM, TOTAL
     Route: 042
     Dates: start: 20241211, end: 20241211

REACTIONS (5)
  - Tachypnoea [Recovering/Resolving]
  - Palpitations [Recovering/Resolving]
  - Chest discomfort [Recovering/Resolving]
  - Asthenia [Recovering/Resolving]
  - Dyspnoea [Recovering/Resolving]

NARRATIVE: CASE EVENT DATE: 20241211
